FAERS Safety Report 13820497 (Version 1)
Quarter: 2017Q3

REPORT INFORMATION
  Report Type: Spontaneous
  Country: US (occurrence: US)
  Receive Date: 20170801
  Receipt Date: 20170801
  Transmission Date: 20171127
  Serious: No
  Sender: FDA-Public Use
  Company Number: US-JNJFOC-20170324691

PATIENT
  Sex: Female
  Weight: 46.27 kg

DRUGS (1)
  1. GENERIC ORTHO TRI-CYCLEN LO [Suspect]
     Active Substance: ETHINYL ESTRADIOL\NORGESTIMATE
     Indication: CONTRACEPTION
     Route: 048
     Dates: start: 2016, end: 2016

REACTIONS (4)
  - Product substitution issue [None]
  - Night sweats [None]
  - Metrorrhagia [Recovered/Resolved]
  - Hot flush [None]

NARRATIVE: CASE EVENT DATE: 2016
